FAERS Safety Report 9209216 (Version 1)
Quarter: 2013Q2

REPORT INFORMATION
  Report Type: Spontaneous
  Country: US (occurrence: US)
  Receive Date: 20130404
  Receipt Date: 20130404
  Transmission Date: 20140414
  Serious: No
  Sender: FDA-Public Use
  Company Number: US-BAYER-2013-042868

PATIENT
  Age: 31 Year
  Sex: Female

DRUGS (12)
  1. CIPROFLOXACIN [Suspect]
     Indication: MYCOBACTERIAL INFECTION
     Dosage: 500 MG, BID
  2. CLARITHROMYCIN [Suspect]
     Indication: MYCOBACTERIAL INFECTION
     Dosage: 500 MG, BID
  3. CORTICOSTEROIDS [Concomitant]
     Indication: SKIN ULCER
     Route: 026
  4. CORTICOSTEROIDS [Concomitant]
     Indication: SKIN ULCER
     Route: 048
  5. METHYLPREDNISOLONE [Concomitant]
  6. DOXYCYCLINE [Concomitant]
  7. SPIRONOLACTONE [Concomitant]
  8. TRETINOIN [Concomitant]
  9. SODIUM SULFACETAMIDE [Concomitant]
     Dosage: 2.5 UNK, UNK
  10. SULFUR [Concomitant]
  11. TRIAMCINOLONE [Concomitant]
     Dosage: 2.5 MG, UNK
  12. TRIAMCINOLONE [Concomitant]
     Dosage: 3 MG, UNK

REACTIONS (1)
  - Gastrointestinal disorder [None]
